FAERS Safety Report 9912546 (Version 1)
Quarter: 2014Q1

REPORT INFORMATION
  Report Type: Spontaneous
  Country: FR (occurrence: None)
  Receive Date: 20140214
  Receipt Date: 20140214
  Transmission Date: 20141002
  Serious: Yes (Hospitalization)
  Sender: FDA-Public Use
  Company Number: 2014SA011445

PATIENT
  Age: 78 Year
  Sex: Female

DRUGS (13)
  1. GARDENAL [Suspect]
     Indication: EPILEPSY
     Route: 048
  2. HYPERIUM [Suspect]
     Route: 048
  3. KEPPRA(LEVETIRACETAM) [Suspect]
     Indication: EPILEPSY
     Route: 048
  4. TOPALGIC [Suspect]
     Indication: PAIN
     Route: 048
  5. ACUPAN [Suspect]
     Route: 048
  6. LERCAN [Suspect]
     Route: 048
  7. EUPRESSYL [Suspect]
  8. LASILIX RETARD(FUROSEMIDE) [Concomitant]
  9. KARDEGIC [Concomitant]
  10. DOLIPRANE [Concomitant]
  11. FORLAX [Concomitant]
  12. FUMAFER [Concomitant]
  13. CALCIDOSE [Concomitant]

REACTIONS (5)
  - Fall [None]
  - Orthostatic hypotension [None]
  - Rhabdomyolysis [None]
  - Renal failure acute [None]
  - Ischaemic stroke [None]
